FAERS Safety Report 16265299 (Version 2)
Quarter: 2019Q2

REPORT INFORMATION
  Report Type: Spontaneous
  Country: US (occurrence: US)
  Receive Date: 20190502
  Receipt Date: 20190522
  Transmission Date: 20190711
  Serious: No
  Sender: FDA-Public Use
  Company Number: US-GLAXOSMITHKLINE-US2019074818

PATIENT
  Sex: Female

DRUGS (1)
  1. ABREVA [Suspect]
     Active Substance: DOCOSANOL
     Indication: ORAL HERPES
     Dosage: UNK,(5 TIMES A DAILY)
     Route: 062
     Dates: start: 20190419, end: 20190421

REACTIONS (2)
  - Product complaint [Unknown]
  - Incorrect product administration duration [Unknown]
